FAERS Safety Report 7663759-6 (Version None)
Quarter: 2011Q3

REPORT INFORMATION
  Report Type: 
  Country: None (occurrence: None)
  Receive Date: 20110805
  Receipt Date: 20100728
  Transmission Date: 20111222
  Serious: No
  Sender: FDA-Public Use
  Company Number: US-ABBOTT-10P-163-0661253-00

PATIENT
  Sex: Male

DRUGS (1)
  1. NIASPAN [Suspect]
     Dosage: ONE AT BED TIME
     Dates: start: 20090701

REACTIONS (1)
  - MEDICATION RESIDUE [None]
